FAERS Safety Report 12435863 (Version 1)
Quarter: 2016Q2

REPORT INFORMATION
  Report Type: Spontaneous
  Country: BG (occurrence: BG)
  Receive Date: 20160603
  Receipt Date: 20160603
  Transmission Date: 20160815
  Serious: Yes (Hospitalization, Other)
  Sender: FDA-Public Use
  Company Number: BG-ASTRAZENECA-2016SE57658

PATIENT
  Age: 61 Year
  Sex: Male

DRUGS (9)
  1. IVABRADIN [Concomitant]
  2. TORASEMIDE [Concomitant]
     Active Substance: TORSEMIDE
     Dosage: 5 MG EVERY OTHER DAY IN THE MORNING
  3. BISOPROLOL [Concomitant]
     Active Substance: BISOPROLOL
  4. AMLODIPIN/VALSARTAN/HYDROCHLOROTHIAZIDE [Concomitant]
     Dosage: FIXED COMBINATION - 5 MG/160 MG/12.5 MG
  5. SPIRONOLACTONE. [Concomitant]
     Active Substance: SPIRONOLACTONE
  6. ROSUVASTATIN. [Concomitant]
     Active Substance: ROSUVASTATIN
  7. BRILIQUE [Suspect]
     Active Substance: TICAGRELOR
     Route: 048
     Dates: start: 201308
  8. ASPIRIN. [Concomitant]
     Active Substance: ASPIRIN
  9. MOXONIDIN [Concomitant]
     Active Substance: MOXONIDINE

REACTIONS (4)
  - Coronary artery stenosis [Unknown]
  - Blood pressure increased [Unknown]
  - Angina pectoris [Unknown]
  - Vascular stent stenosis [Unknown]

NARRATIVE: CASE EVENT DATE: 201310
